FAERS Safety Report 8512054 (Version 2)
Quarter: 2012Q4

REPORT INFORMATION
  Report Type: 
  Country: US (occurrence: US)
  Receive Date: 20120413
  Receipt Date: 20121016
  Transmission Date: 20130627
  Serious: No
  Sender: FDA-Public Use
  Company Number: US-ASTRAZENECA-2011SE35464

PATIENT
  Age: 73 Year
  Sex: Female

DRUGS (2)
  1. NEXIUM [Suspect]
     Dosage: THREE PER DAY
     Route: 048
  2. CRESTOR [Suspect]
     Route: 048

REACTIONS (6)
  - Gastric disorder [Unknown]
  - Gastrooesophageal reflux disease [Unknown]
  - Weight increased [Unknown]
  - Drug prescribing error [Unknown]
  - Diabetes mellitus [Unknown]
  - Drug dose omission [Unknown]
